FAERS Safety Report 6771741-6 (Version None)
Quarter: 2010Q2

REPORT INFORMATION
  Report Type: 
  Country: None (occurrence: None)
  Receive Date: 20100616
  Receipt Date: 20091214
  Transmission Date: 20101027
  Serious: No
  Sender: FDA-Public Use
  Company Number: US-ASTRAZENECA-2009SE31887

PATIENT
  Age: 87 Year
  Sex: Female

DRUGS (2)
  1. ATACAND [Suspect]
     Indication: HYPERTENSION
     Route: 048
  2. ATACAND [Suspect]
     Route: 048

REACTIONS (3)
  - BLOOD PRESSURE DECREASED [None]
  - FLUSHING [None]
  - INTENTIONAL DRUG MISUSE [None]
